FAERS Safety Report 9353324 (Version 1)
Quarter: 2013Q2

REPORT INFORMATION
  Report Type: Spontaneous
  Country: US (occurrence: US)
  Receive Date: 20130618
  Receipt Date: 20130618
  Transmission Date: 20140414
  Serious: Yes (Hospitalization, Other)
  Sender: FDA-Public Use
  Company Number: US-BRISTOL-MYERS SQUIBB COMPANY-18884783

PATIENT
  Age: 26 Year
  Sex: Female

DRUGS (4)
  1. ABILIFY TABS 2 MG [Suspect]
     Indication: DRUG EFFECT INCREASED
     Route: 048
  2. ABILIFY TABS 2 MG [Suspect]
     Indication: DEPRESSION
     Route: 048
  3. PAXIL [Concomitant]
     Indication: DEPRESSION
  4. KLONOPIN [Concomitant]
     Indication: DEPRESSION

REACTIONS (1)
  - Arnold-Chiari malformation [Unknown]
